FAERS Safety Report 4723319-3 (Version None)
Quarter: 2005Q3

REPORT INFORMATION
  Report Type: 
  Country: None (occurrence: None)
  Receive Date: 20050725
  Receipt Date: 20050713
  Transmission Date: 20060218
  Serious: Yes (Other)
  Sender: FDA-Public Use
  Company Number: US-KINGPHARMUSA00001-K200500959

PATIENT
  Age: 31 Year
  Sex: Female
  Weight: 63 kg

DRUGS (4)
  1. LEVOXYL [Suspect]
     Indication: HYPOTHYROIDISM
     Dosage: 88 MCG, QD
     Route: 048
     Dates: start: 20020101, end: 20050629
  2. LEVOXYL [Suspect]
     Dosage: 75 MCG, QD
     Route: 048
     Dates: start: 20050630
  3. PRENATAL VITAMINS [Concomitant]
     Dosage: 1 TAB, QD
     Route: 048
     Dates: start: 20030101
  4. EXCEDRIN (MIGRAINE) [Concomitant]
     Indication: HEADACHE
     Dosage: 1 TAB, Q4H
     Route: 048

REACTIONS (5)
  - ABORTION SPONTANEOUS [None]
  - BLOOD THYROID STIMULATING HORMONE ABNORMAL [None]
  - DRUG EXPOSURE DURING PREGNANCY [None]
  - PREGNANCY [None]
  - SWEAT DISCOLOURATION [None]
